FAERS Safety Report 5502624-7 (Version None)
Quarter: 2007Q4

REPORT INFORMATION
  Report Type: 
  Country: None (occurrence: None)
  Receive Date: 20071031
  Receipt Date: 20071022
  Transmission Date: 20080405
  Serious: Yes (Hospitalization, Disabling)
  Sender: FDA-Public Use
  Company Number: US-JNJFOC-20070803248

PATIENT
  Sex: Female
  Weight: 47.63 kg

DRUGS (1)
  1. FENTANYL TRANSDERMAL SYSTEM [Suspect]
     Indication: PHANTOM PAIN
     Dosage: 50UG/HR PATCH 12.5UG/HR PATCH
     Route: 062

REACTIONS (5)
  - APPLICATION SITE VESICLES [None]
  - DECUBITUS ULCER [None]
  - DRUG DOSE OMISSION [None]
  - OSTEOPOROTIC FRACTURE [None]
  - WRONG TECHNIQUE IN DRUG USAGE PROCESS [None]
